FAERS Safety Report 11860372 (Version 1)
Quarter: 2015Q4

REPORT INFORMATION
  Report Type: Spontaneous
  Country: US (occurrence: US)
  Receive Date: 20151222
  Receipt Date: 20151222
  Transmission Date: 20160305
  Serious: No
  Sender: FDA-Public Use
  Company Number: US-ASTRAZENECA-2015SF26581

PATIENT
  Sex: Male
  Weight: 70.3 kg

DRUGS (1)
  1. SYMBICORT [Suspect]
     Active Substance: BUDESONIDE\FORMOTEROL FUMARATE DIHYDRATE
     Indication: CHRONIC OBSTRUCTIVE PULMONARY DISEASE
     Dosage: 160MCG/4.5MCG 2 INHALATIONS TWICE DAILY
     Route: 055

REACTIONS (4)
  - Candida infection [Unknown]
  - Device malfunction [Unknown]
  - Intentional product misuse [Unknown]
  - Underdose [Unknown]
